APPROVED DRUG PRODUCT: INDOCIN SR
Active Ingredient: INDOMETHACIN
Strength: 75MG **Federal Register determination that product was not discontinued or withdrawn for safety or effectiveness reasons**
Dosage Form/Route: CAPSULE, EXTENDED RELEASE;ORAL
Application: N018185 | Product #001
Applicant: ZYLA LIFE SCIENCES US INC
Approved: Feb 23, 1982 | RLD: Yes | RS: No | Type: DISCN